FAERS Safety Report 7337030-6 (Version None)
Quarter: 2011Q1

REPORT INFORMATION
  Report Type: 
  Country: None (occurrence: None)
  Receive Date: 20110308
  Receipt Date: 20100129
  Transmission Date: 20110831
  Serious: No
  Sender: FDA-Public Use
  Company Number: US-BAYER-201012933NA

PATIENT
  Sex: Female
  Weight: 72.562 kg

DRUGS (1)
  1. MIRENA [Suspect]
     Dosage: 20 MCG/24HR, CONT
     Route: 015
     Dates: start: 20091123, end: 20091226

REACTIONS (2)
  - DEVICE DISLOCATION [None]
  - DYSMENORRHOEA [None]
